FAERS Safety Report 22721985 (Version 2)
Quarter: 2024Q1

REPORT INFORMATION
  Report Type: Spontaneous
  Country: GB (occurrence: GB)
  Receive Date: 20230719
  Receipt Date: 20240222
  Transmission Date: 20240410
  Serious: Yes (Death, Life-Threatening, Other)
  Sender: FDA-Public Use
  Company Number: GB-MHRA-MED-202307061812527790-QSYJZ

PATIENT

DRUGS (1)
  1. FINASTERIDE [Suspect]
     Active Substance: FINASTERIDE
     Indication: Product used for unknown indication
     Dosage: 1 MILLIGRAM, QD
     Route: 065

REACTIONS (11)
  - Completed suicide [Fatal]
  - Insomnia [Unknown]
  - Tinnitus [Unknown]
  - Brain fog [Unknown]
  - Visual impairment [Unknown]
  - Muscle atrophy [Unknown]
  - Penis disorder [Unknown]
  - Anxiety [Unknown]
  - Anhedonia [Unknown]
  - Testicular pain [Unknown]
  - Suicidal ideation [Unknown]
